FAERS Safety Report 7416406-2 (Version None)
Quarter: 2011Q2

REPORT INFORMATION
  Report Type: 
  Country: None (occurrence: None)
  Receive Date: 20110414
  Receipt Date: 20110401
  Transmission Date: 20111010
  Serious: Yes (Life-Threatening, Hospitalization)
  Sender: FDA-Public Use
  Company Number: DE-CELGENEUS-062-50794-11040186

PATIENT
  Age: 81 Year
  Sex: Female
  Weight: 42 kg

DRUGS (1)
  1. VIDAZA [Suspect]
     Indication: MYELODYSPLASTIC SYNDROME TRANSFORMATION
     Dosage: 75 MILLIGRAM/SQ. METER
     Route: 058

REACTIONS (5)
  - DYSPNOEA [None]
  - PYREXIA [None]
  - DIARRHOEA [None]
  - ANAPHYLACTIC REACTION [None]
  - SHOCK [None]
